FAERS Safety Report 15404373 (Version 2)
Quarter: 2018Q4

REPORT INFORMATION
  Report Type: Spontaneous
  Country: IT (occurrence: IT)
  Receive Date: 20180919
  Receipt Date: 20181101
  Transmission Date: 20190204
  Serious: Yes (Life-Threatening)
  Sender: FDA-Public Use
  Company Number: PHHY2018IT102889

PATIENT
  Age: 70 Year
  Sex: Male
  Weight: 70 kg

DRUGS (1)
  1. METFORMIN [Suspect]
     Active Substance: METFORMIN HYDROCHLORIDE
     Indication: DIABETES MELLITUS
     Dosage: 1 ?G/L, QD
     Route: 048

REACTIONS (2)
  - Metabolic acidosis [Unknown]
  - Renal failure [Unknown]

NARRATIVE: CASE EVENT DATE: 20180825
